FAERS Safety Report 5484618-3 (Version None)
Quarter: 2007Q4

REPORT INFORMATION
  Report Type: 
  Country: None (occurrence: None)
  Receive Date: 20071012
  Receipt Date: 20071001
  Transmission Date: 20080405
  Serious: Yes (Death, Other)
  Sender: FDA-Public Use
  Company Number: CO-PFIZER INC-2007083018

PATIENT
  Sex: Male

DRUGS (1)
  1. LINEZOLID [Suspect]
     Indication: PNEUMONIA
     Route: 042
     Dates: start: 20070916, end: 20070925

REACTIONS (2)
  - ARRHYTHMIA [None]
  - PLATELET COUNT ABNORMAL [None]
